FAERS Safety Report 9400489 (Version 2)
Quarter: 2013Q4

REPORT INFORMATION
  Report Type: Spontaneous
  Country: US (occurrence: US)
  Receive Date: 20130715
  Receipt Date: 20131111
  Transmission Date: 20140711
  Serious: Yes (Other)
  Sender: FDA-Public Use
  Company Number: US-GLAXOSMITHKLINE-A1031229A

PATIENT
  Age: 39 Year
  Sex: Female

DRUGS (2)
  1. LAMICTAL [Suspect]
     Indication: BIPOLAR DISORDER
     Dosage: 200MG UNKNOWN
     Route: 048
     Dates: start: 20091009, end: 20130701
  2. WELLBUTRIN [Concomitant]

REACTIONS (14)
  - Loss of control of legs [Recovered/Resolved]
  - Overdose [Recovered/Resolved]
  - Dizziness [Recovered/Resolved]
  - Diplopia [Recovered/Resolved]
  - Gait disturbance [Recovered/Resolved]
  - Muscular weakness [Recovered/Resolved]
  - Restless legs syndrome [Recovered/Resolved]
  - Emotional disorder [Recovered/Resolved]
  - Altered visual depth perception [Recovered/Resolved]
  - Strabismus [Recovered/Resolved]
  - Crying [Recovered/Resolved]
  - Vision blurred [Unknown]
  - Drug dispensing error [Unknown]
  - Muscle spasms [Unknown]
